FAERS Safety Report 21662644 (Version 1)
Quarter: 2022Q4

REPORT INFORMATION
  Report Type: Spontaneous
  Country: US (occurrence: US)
  Receive Date: 20221130
  Receipt Date: 20221130
  Transmission Date: 20230113
  Serious: No
  Sender: FDA-Public Use
  Company Number: US-SA-SAC20221129001370

PATIENT
  Age: 53 Year
  Sex: Male
  Weight: 121.6 kg

DRUGS (4)
  1. AUBAGIO [Suspect]
     Active Substance: TERIFLUNOMIDE
     Indication: Multiple sclerosis
     Dosage: 1 DF QD
     Route: 065
     Dates: start: 20220224
  2. ADVIL [Concomitant]
     Active Substance: IBUPROFEN
  3. MOTRIN [Concomitant]
     Active Substance: IBUPROFEN
  4. VITAMIN D3 [Concomitant]
     Active Substance: CHOLECALCIFEROL

REACTIONS (2)
  - Diarrhoea [Unknown]
  - Headache [Unknown]

NARRATIVE: CASE EVENT DATE: 20220224
